FAERS Safety Report 4730468-2 (Version None)
Quarter: 2005Q3

REPORT INFORMATION
  Report Type: 
  Country: None (occurrence: None)
  Receive Date: 20050801
  Receipt Date: 20050526
  Transmission Date: 20060218
  Serious: Yes (Hospitalization, Other)
  Sender: FDA-Public Use
  Company Number: US-BRISTOL-MYERS SQUIBB COMPANY-12984779

PATIENT
  Age: 88 Year
  Sex: Male

DRUGS (5)
  1. ERBITUX [Suspect]
     Indication: COLON CANCER
     Dosage: INITIAL DOSE, 600 MG; INFUSION D/C 30 MINUTES AFTER INITIATION.
     Route: 042
     Dates: start: 20050505, end: 20050505
  2. BENADRYL [Concomitant]
     Indication: PREMEDICATION
     Route: 042
     Dates: start: 20050505, end: 20050505
  3. LANTUS [Concomitant]
  4. LORTAB [Concomitant]
  5. DURAGESIC-100 [Concomitant]

REACTIONS (2)
  - INFUSION RELATED REACTION [None]
  - MYOCARDIAL INFARCTION [None]
